FAERS Safety Report 9339097 (Version 1)
Quarter: 2013Q2

REPORT INFORMATION
  Report Type: Spontaneous
  Country: US (occurrence: None)
  Receive Date: 20130606
  Receipt Date: 20130606
  Transmission Date: 20140414
  Serious: Yes (Other)
  Sender: FDA-Public Use
  Company Number: None

PATIENT
  Age: 63 Year
  Sex: Female
  Weight: 57.15 kg

DRUGS (1)
  1. TRAVATAN Z [Suspect]
     Dosage: OTIC
     Dates: start: 20130101, end: 20130605

REACTIONS (1)
  - Hair growth abnormal [None]
